FAERS Safety Report 9709692 (Version 2)
Quarter: 2013Q4

REPORT INFORMATION
  Report Type: Report from Study
  Country: NZ (occurrence: NZ)
  Receive Date: 20131126
  Receipt Date: 20131224
  Transmission Date: 20140711
  Serious: Yes (Death, Other)
  Sender: FDA-Public Use
  Company Number: PHHY2013NZ135945

PATIENT
  Age: 92 Year
  Sex: Female

DRUGS (6)
  1. ACLASTA [Suspect]
     Dosage: 5 MG
     Route: 042
  2. ACCUPRIL [Concomitant]
     Indication: HYPERTENSION
     Dosage: 10 MG
     Route: 048
  3. LOSEC [Concomitant]
     Indication: GASTROOESOPHAGEAL REFLUX DISEASE
     Dosage: 40 MG, DAILY
     Route: 048
  4. ARIMIDEX [Concomitant]
     Indication: BREAST CANCER
     Dosage: 1 MG, DAILY
     Route: 048
  5. METOPROLOL [Concomitant]
     Indication: HYPERTENSION
     Dosage: 47.5 MG, DAILY
     Route: 048
  6. ANTIARRHYTHMIC AGENTS [Concomitant]
     Dosage: UNK

REACTIONS (2)
  - Cerebrovascular accident [Fatal]
  - Coma [Unknown]
